FAERS Safety Report 15014574 (Version 1)
Quarter: 2018Q2

REPORT INFORMATION
  Report Type: Report from Study
  Country: BR (occurrence: BR)
  Receive Date: 20180615
  Receipt Date: 20180615
  Transmission Date: 20180711
  Serious: Yes (Other)
  Sender: FDA-Public Use
  Company Number: BR-ROCHE-2139132

PATIENT
  Sex: Female
  Weight: 62 kg

DRUGS (1)
  1. XOLAIR [Suspect]
     Active Substance: OMALIZUMAB
     Indication: URTICARIA
     Dosage: 300 MG, EVERY 28 DAYS
     Route: 058
     Dates: start: 2017

REACTIONS (14)
  - Dry skin [Unknown]
  - Sinusitis [Unknown]
  - Inflammation [Unknown]
  - Blister [Unknown]
  - Urticaria [Recovering/Resolving]
  - Drug ineffective [Unknown]
  - Asthma [Unknown]
  - Erythema [Unknown]
  - Skin infection [Unknown]
  - Drug intolerance [Unknown]
  - Skin haemorrhage [Unknown]
  - Skin irritation [Unknown]
  - Rhinitis [Unknown]
  - Pain [Unknown]
